FAERS Safety Report 5509693-9 (Version None)
Quarter: 2007Q4

REPORT INFORMATION
  Report Type: 
  Country: None (occurrence: None)
  Receive Date: 20071107
  Receipt Date: 20071107
  Transmission Date: 20080405
  Serious: No
  Sender: FDA-Public Use
  Company Number: None

PATIENT
  Age: 51 Year
  Sex: Female
  Weight: 78.9259 kg

DRUGS (2)
  1. KALETRA [Suspect]
     Indication: HIV INFECTION
     Dosage: 2OOMG 2 TIMES DAY EVERY DAY
     Dates: start: 20071011, end: 20071019
  2. KALETRA [Suspect]
     Indication: HIV INFECTION
     Dosage: 200MG 2 TIMES DAY EVERY DAY
     Dates: start: 20071019, end: 20071115

REACTIONS (1)
  - PHARMACEUTICAL PRODUCT COMPLAINT [None]
